FAERS Safety Report 19732058 (Version 1)
Quarter: 2021Q3

REPORT INFORMATION
  Report Type: Spontaneous
  Country: US (occurrence: US)
  Receive Date: 20210820
  Receipt Date: 20210820
  Transmission Date: 20211014
  Serious: Yes (Hospitalization)
  Sender: FDA-Public Use
  Company Number: US-FRESENIUS MEDICAL CARE RENAL THERAPIES GROUP-FMC-2108-001220

PATIENT
  Age: 74 Year
  Sex: Female

DRUGS (3)
  1. DELFLEX WITH DEXTROSE 1.5% LOW MAGNESIUM LOW CALCIUM [Suspect]
     Active Substance: CALCIUM CHLORIDE\DEXTROSE\MAGNESIUM CHLORIDE\SODIUM CHLORIDE\SODIUM LACTATE
     Indication: END STAGE RENAL DISEASE
     Dosage: EXCHANGES = 6, FILL VOLUME = 2000 ML, LAST FILL = 1500 ML, DWELL TIME = 1.0 HOUR 28 MINUTES.
     Route: 033
     Dates: start: 20180414
  2. DELFLEX WITH DEXTROSE 2.5% LOW MAGNESIUM LOW CALCIUM [Suspect]
     Active Substance: CALCIUM CHLORIDE\DEXTROSE\MAGNESIUM CHLORIDE\SODIUM CHLORIDE\SODIUM LACTATE
     Indication: END STAGE RENAL DISEASE
     Dosage: EXCHANGES = 6, FILL VOLUME = 2000 ML, LAST FILL = 1500 ML, DWELL TIME = 1.0 HOUR 28 MINUTES.
     Route: 033
     Dates: start: 20180414
  3. DELFLEX WITH DEXTROSE 4.25% LOW MAGNESIUM LOW CALCIUM [Suspect]
     Active Substance: CALCIUM CHLORIDE\DEXTROSE\MAGNESIUM CHLORIDE\SODIUM CHLORIDE\SODIUM LACTATE
     Indication: END STAGE RENAL DISEASE
     Dosage: EXCHANGES = 6, FILL VOLUME = 2000 ML, LAST FILL = 1500 ML, DWELL TIME = 1.0 HOUR 28 MINUTES.
     Route: 033
     Dates: start: 20180414

REACTIONS (1)
  - Peritonitis bacterial [Recovering/Resolving]
